FAERS Safety Report 6891831-7 (Version None)
Quarter: 2010Q3

REPORT INFORMATION
  Report Type: 
  Country: None (occurrence: None)
  Receive Date: 20100731
  Receipt Date: 20071026
  Transmission Date: 20110219
  Serious: Yes (Hospitalization, Other)
  Sender: FDA-Public Use
  Company Number: US-PFIZER INC-2007090593

PATIENT
  Sex: Male
  Weight: 109.09 kg

DRUGS (2)
  1. NORVASC [Suspect]
     Indication: HYPERTENSION
     Dosage: DAILY
  2. AMLODIPINE [Suspect]
     Indication: HYPERTENSION
     Dosage: DAILY
     Dates: start: 20070101

REACTIONS (2)
  - BLOOD CHOLESTEROL INCREASED [None]
  - TRANSIENT ISCHAEMIC ATTACK [None]
